FAERS Safety Report 6212209-5 (Version None)
Quarter: 2009Q2

REPORT INFORMATION
  Report Type: 
  Country: None (occurrence: None)
  Receive Date: 20090602
  Receipt Date: 20090526
  Transmission Date: 20091009
  Serious: Yes (Other)
  Sender: FDA-Public Use
  Company Number: PHEH2009US00915

PATIENT
  Sex: Female
  Weight: 61.224 kg

DRUGS (9)
  1. RECLAST [Suspect]
     Indication: OSTEOPOROSIS
     Dosage: UNK, UNK
     Dates: start: 20080901, end: 20080901
  2. VALIUM [Concomitant]
     Dosage: 5 MG, BID
     Route: 048
  3. LEXAPRO [Concomitant]
     Dosage: 10 MG, QD
     Route: 048
  4. DEPAKOTE [Concomitant]
     Dosage: 125 MG, QD
     Route: 048
  5. REGLAN [Concomitant]
     Dosage: 5 MG, QD
     Route: 048
  6. NASONEX [Concomitant]
     Dosage: 2 SPRAYS DAILY
     Route: 045
  7. ASTELIN [Concomitant]
     Dosage: 2 SPRAYS TWICE DAILY
     Route: 045
  8. VAGIFEM [Concomitant]
     Dosage: 25MG TWICE WEEKLY
     Route: 067
  9. SYNTHROID [Concomitant]
     Dosage: 0.075MG DAILY
     Route: 048

REACTIONS (3)
  - CONTUSION [None]
  - DRY MOUTH [None]
  - SWOLLEN TONGUE [None]
